FAERS Safety Report 10812618 (Version 1)
Quarter: 2015Q1

REPORT INFORMATION
  Report Type: Report from Study
  Country: US (occurrence: US)
  Receive Date: 20150218
  Receipt Date: 20150218
  Transmission Date: 20150721
  Serious: No
  Sender: FDA-Public Use
  Company Number: US-ABBVIE-14K-163-1275959-00

PATIENT
  Age: 49 Year
  Sex: Male

DRUGS (12)
  1. DILTIAZEM [Concomitant]
     Active Substance: DILTIAZEM
     Indication: HYPERTENSION
  2. HUMIRA [Suspect]
     Active Substance: ADALIMUMAB
     Dates: start: 20140818
  3. UNKNOWN CURRENT MEDICATION [Suspect]
     Active Substance: UNSPECIFIED INGREDIENT
     Indication: DEPRESSION
  4. PAXIL [Concomitant]
     Active Substance: PAROXETINE HYDROCHLORIDE
     Indication: DEPRESSION
  5. MAGNESIUM OXIDE. [Concomitant]
     Active Substance: MAGNESIUM OXIDE
     Indication: HYPERTENSION
  6. ASACOL [Concomitant]
     Active Substance: MESALAMINE
     Indication: CROHN^S DISEASE
  7. ABILIFY [Concomitant]
     Active Substance: ARIPIPRAZOLE
     Indication: DEPRESSION
  8. ABILIFY [Concomitant]
     Active Substance: ARIPIPRAZOLE
     Indication: ANGER
  9. UNKNOWN CURRENT MEDICATION [Suspect]
     Active Substance: UNSPECIFIED INGREDIENT
     Indication: ANGER
  10. HUMIRA [Suspect]
     Active Substance: ADALIMUMAB
     Indication: CROHN^S DISEASE
     Dates: start: 2012
  11. DEPAKOTE [Concomitant]
     Active Substance: DIVALPROEX SODIUM
     Indication: MIGRAINE
     Dosage: 1000 MG IN MORNING AND 250 MG AT NIGHT
  12. HUMIRA [Suspect]
     Active Substance: ADALIMUMAB
     Dates: end: 20140721

REACTIONS (10)
  - Somnolence [Unknown]
  - Respiratory tract congestion [Unknown]
  - Scab [Recovering/Resolving]
  - Drug effect incomplete [Unknown]
  - Impaired healing [Not Recovered/Not Resolved]
  - Crohn^s disease [Not Recovered/Not Resolved]
  - Paronychia [Recovered/Resolved]
  - Ingrowing nail [Recovered/Resolved]
  - Nasopharyngitis [Unknown]
  - Laceration [Not Recovered/Not Resolved]

NARRATIVE: CASE EVENT DATE: 2014
